FAERS Safety Report 4383287-3 (Version None)
Quarter: 2004Q2

REPORT INFORMATION
  Report Type: 
  Country: None (occurrence: None)
  Receive Date: 20040618
  Receipt Date: 20040528
  Transmission Date: 20050107
  Serious: Yes (Hospitalization, Other)
  Sender: FDA-Public Use
  Company Number: USA040668848

PATIENT
  Age: 83 Year
  Sex: Female

DRUGS (1)
  1. FORTEO [Suspect]
     Indication: OSTEOPOROSIS
     Dates: start: 20030101, end: 20040416

REACTIONS (7)
  - ERYTHEMA [None]
  - FATIGUE [None]
  - FEELING HOT [None]
  - GASTRIC DYSPLASIA [None]
  - HAEMOGLOBIN DECREASED [None]
  - INCISION SITE COMPLICATION [None]
  - PHARMACEUTICAL PRODUCT COMPLAINT [None]
